FAERS Safety Report 23577849 (Version 3)
Quarter: 2024Q2

REPORT INFORMATION
  Report Type: Report from Study
  Country: BR (occurrence: BR)
  Receive Date: 20240228
  Receipt Date: 20240419
  Transmission Date: 20240716
  Serious: Yes (Hospitalization, Disabling)
  Sender: FDA-Public Use
  Company Number: BR-LEO Pharma-368051

PATIENT
  Age: 51 Year
  Sex: Male

DRUGS (4)
  1. BRODALUMAB [Suspect]
     Active Substance: BRODALUMAB
     Indication: Psoriasis
     Dosage: 210 MG ONCE A WEEK FOR 3 WEEKS AND THEN 210 MG EVERY TWO WEEKS
     Route: 058
  2. CLONIDINE [Concomitant]
     Active Substance: CLONIDINE
     Indication: Hypertension
     Dosage: IN THE EVENING
     Route: 048
  3. AMLODIPINE [Concomitant]
     Active Substance: AMLODIPINE BESYLATE
     Indication: Hypertension
     Dosage: IN THE EVENING
     Route: 048
  4. ENALAPRIL [Concomitant]
     Active Substance: ENALAPRIL
     Indication: Hypertension
     Dosage: IN THE EVENING
     Route: 048

REACTIONS (7)
  - Rib fracture [Recovered/Resolved]
  - Pulmonary pain [Recovered/Resolved]
  - Cough [Recovered/Resolved]
  - Rib fracture [Recovered/Resolved]
  - Surgery [Recovered/Resolved]
  - Nasopharyngitis [Recovered/Resolved]
  - Influenza [Recovered/Resolved]

NARRATIVE: CASE EVENT DATE: 20240101
